FAERS Safety Report 5365835-X (Version None)
Quarter: 2007Q2

REPORT INFORMATION
  Report Type: 
  Country: None (occurrence: None)
  Receive Date: 20070621
  Receipt Date: 20070619
  Transmission Date: 20071010
  Serious: Yes (Life-Threatening)
  Sender: FDA-Public Use
  Company Number: CN-SHR-CN-2007-022926

PATIENT
  Age: 35 Year
  Sex: Female
  Weight: 57 kg

DRUGS (1)
  1. ULTRAVIST 370 [Suspect]
     Route: 042
     Dates: start: 20070615, end: 20070615

REACTIONS (3)
  - BLOOD PRESSURE DECREASED [None]
  - LIP OEDEMA [None]
  - SHOCK [None]
